FAERS Safety Report 8435009-4 (Version None)
Quarter: 2012Q2

REPORT INFORMATION
  Report Type: 
  Country: None (occurrence: None)
  Receive Date: 20120614
  Receipt Date: 20120608
  Transmission Date: 20120825
  Serious: Yes (Other)
  Sender: FDA-Public Use
  Company Number: US-PFIZER INC-2012138743

PATIENT
  Sex: Female
  Weight: 54.422 kg

DRUGS (12)
  1. FISH OIL [Concomitant]
     Dosage: 1000 MG, DAILY
  2. PREDNISONE [Concomitant]
     Indication: PULMONARY FIBROSIS
     Dosage: 10 MG, DAILY
  3. REVATIO [Suspect]
     Indication: PULMONARY HYPERTENSION
     Dosage: 20 MG, 3X/DAY
     Route: 048
     Dates: start: 20110801
  4. WARFARIN SODIUM [Concomitant]
     Indication: PULMONARY HYPERTENSION
     Dosage: 2.5 MG, EVERY OTHER DAY
  5. CALCIUM [Concomitant]
     Dosage: 500 MG, DAILY
  6. HYDROCHLOROTHIAZIDE [Concomitant]
     Indication: OEDEMA PERIPHERAL
     Dosage: 12.5 MG, DAILY
  7. PROTONIX [Concomitant]
     Indication: GASTROOESOPHAGEAL REFLUX DISEASE
     Dosage: 40 MG, 1X/DAY
  8. TAXOL [Concomitant]
     Indication: ANXIETY
     Dosage: 20 MG, 1X/DAY
  9. LIPOFLAVONOID [Concomitant]
     Indication: BLOOD CHOLESTEROL INCREASED
     Dosage: UNK,DAILY
  10. TRACLEER [Concomitant]
     Indication: ANAEMIA
     Dosage: 125 MG, 2X/DAY
  11. MECLIZINE HYDROCHLORIDE [Concomitant]
     Indication: VERTIGO
     Dosage: 25 MG, DAILY
  12. VALIUM [Concomitant]
     Indication: ANXIETY
     Dosage: 2 MG, DAILY

REACTIONS (1)
  - DEAFNESS [None]
